FAERS Safety Report 5326972-9 (Version None)
Quarter: 2007Q2

REPORT INFORMATION
  Report Type: 
  Country: None (occurrence: None)
  Receive Date: 20070220
  Receipt Date: 20070104
  Transmission Date: 20071010
  Serious: No
  Sender: FDA-Public Use
  Company Number: WAES 0701USA00720

PATIENT
  Age: 43 Year
  Sex: Male

DRUGS (4)
  1. JANUVIA [Suspect]
     Indication: DIABETES MELLITUS INSULIN-DEPENDENT
     Dosage: 100 MG DAILY PO
     Route: 048
     Dates: start: 20070104, end: 20070104
  2. DIOVAN [Concomitant]
  3. CAPTOPRIL [Concomitant]
  4. INSULIN [Concomitant]

REACTIONS (2)
  - HEADACHE [None]
  - OFF LABEL USE [None]
